FAERS Safety Report 5324406-1 (Version None)
Quarter: 2007Q2

REPORT INFORMATION
  Report Type: 
  Country: None (occurrence: None)
  Receive Date: 20070509
  Receipt Date: 20070425
  Transmission Date: 20071010
  Serious: Yes (Other)
  Sender: FDA-Public Use
  Company Number: 2007RR-07244

PATIENT
  Sex: Female

DRUGS (3)
  1. GABAPENTIN [Suspect]
  2. MAXTREX(METHOTREXATE) [Suspect]
     Dosage: 10 MG, 1/WEEK, ORAL
     Route: 048
  3. NEURONTIN [Suspect]
     Dosage: 600 MG, TID, ORAL
     Route: 048

REACTIONS (3)
  - SEPSIS [None]
  - URINARY RETENTION [None]
  - URINARY TRACT INFECTION [None]
